FAERS Safety Report 22703601 (Version 2)
Quarter: 2023Q4

REPORT INFORMATION
  Report Type: Spontaneous
  Country: US (occurrence: US)
  Receive Date: 20230713
  Receipt Date: 20231011
  Transmission Date: 20240109
  Serious: No
  Sender: FDA-Public Use
  Company Number: US-SA-SAC20230712001093

PATIENT
  Age: 51 Year
  Sex: Female

DRUGS (15)
  1. DUPIXENT [Suspect]
     Active Substance: DUPILUMAB
     Indication: Dermatitis atopic
     Dosage: 300 MG, QOW
     Route: 058
     Dates: start: 20230324
  2. FOLLISTIM AQ [Concomitant]
     Active Substance: FOLLITROPIN
     Dosage: UNK
  3. LEUPROLIDE ACETATE [Concomitant]
     Active Substance: LEUPROLIDE ACETATE
     Dosage: UNK
  4. OVIDREL [Concomitant]
     Active Substance: CHORIOGONADOTROPIN ALFA
     Dosage: UNK
  5. PROMETRIUM [Concomitant]
     Active Substance: PROGESTERONE
     Dosage: UNK
  6. SHINGRIX [Concomitant]
     Active Substance: RECOMBINANT VARICELLA ZOSTER VIRUS (VZV) GLYCOPROTEIN E
     Dosage: UNK
  7. VALACYCLOVIR [Concomitant]
     Active Substance: VALACYCLOVIR HYDROCHLORIDE
     Dosage: UNK
  8. VIVELLE-DOT [Concomitant]
     Active Substance: ESTRADIOL
     Dosage: UNK
  9. AMOXICILLIN\CLAVULANATE POTASSIUM [Concomitant]
     Active Substance: AMOXICILLIN\CLAVULANATE POTASSIUM
     Dosage: UNK
  10. DOXYCYCLINE HYDROCHLORIDE [Concomitant]
     Active Substance: DOXYCYCLINE HYDROCHLORIDE
     Dosage: UNK
  11. FOLLISTIM AQ [Concomitant]
     Active Substance: FOLLITROPIN
     Dosage: UNK
  12. FOLLISTIM AQ [Concomitant]
     Active Substance: FOLLITROPIN
     Dosage: UNK
  13. MINERALS\VITAMINS [Concomitant]
     Active Substance: MINERALS\VITAMINS
     Dosage: UNK
  14. TRIAMCINOLONE [Concomitant]
     Active Substance: TRIAMCINOLONE
     Dosage: UNK
  15. INSULIN NOS [Concomitant]
     Active Substance: INSULIN NOS

REACTIONS (4)
  - Sleep disorder [Unknown]
  - Oral herpes [Unknown]
  - Injection site reaction [Unknown]
  - Eye irritation [Unknown]

NARRATIVE: CASE EVENT DATE: 20230101
